FAERS Safety Report 4890610-X (Version None)
Quarter: 2006Q1

REPORT INFORMATION
  Report Type: 
  Country: None (occurrence: None)
  Receive Date: 20060123
  Receipt Date: 20060106
  Transmission Date: 20060701
  Serious: Yes (Hospitalization)
  Sender: FDA-Public Use
  Company Number: US200601001173

PATIENT
  Age: 70 Year
  Sex: Female

DRUGS (3)
  1. ILETIN (INSULIN, ANIMAL) VIAL [Suspect]
     Indication: DIABETES MELLITUS
     Dates: end: 20050401
  2. LANTUS [Concomitant]
  3. NOVOLOG [Concomitant]

REACTIONS (13)
  - FALL [None]
  - GINGIVAL PAIN [None]
  - GINGIVAL SWELLING [None]
  - IMPAIRED HEALING [None]
  - IMPLANT SITE HYPERSENSITIVITY [None]
  - LOCALISED INFECTION [None]
  - LOWER LIMB FRACTURE [None]
  - MALAISE [None]
  - MEMORY IMPAIRMENT [None]
  - OFF LABEL USE [None]
  - PAIN [None]
  - THERMAL BURN [None]
  - TOOTH REPAIR [None]
